FAERS Safety Report 9698558 (Version 2)
Quarter: 2013Q4

REPORT INFORMATION
  Report Type: Spontaneous
  Country: IT (occurrence: IT)
  Receive Date: 20131120
  Receipt Date: 20131202
  Transmission Date: 20140711
  Serious: Yes (Hospitalization)
  Sender: FDA-Public Use
  Company Number: IT-PFIZER INC-2013329226

PATIENT
  Age: 77 Year
  Sex: Male

DRUGS (4)
  1. XANAX [Suspect]
     Dosage: 1 DF, DAILY
     Route: 048
     Dates: start: 20130101, end: 20130814
  2. LORMETAZEPAM [Suspect]
     Dosage: 1 DF, UNK
     Route: 049
     Dates: start: 20130101, end: 20130814
  3. CONTROL [Suspect]
     Dosage: 2.5 MG, DAILY
     Route: 048
     Dates: start: 20130101, end: 20130814
  4. ENTACT [Suspect]
     Indication: DEPRESSION
     Dosage: 10 MG, DAILY
     Route: 048
     Dates: start: 20130101, end: 20130814

REACTIONS (2)
  - Sopor [Recovered/Resolved]
  - Toxicity to various agents [Recovered/Resolved]
